FAERS Safety Report 6289292-4 (Version None)
Quarter: 2009Q3

REPORT INFORMATION
  Report Type: 
  Country: None (occurrence: None)
  Receive Date: 20090730
  Receipt Date: 20090715
  Transmission Date: 20100115
  Serious: Yes (Other)
  Sender: FDA-Public Use
  Company Number: SE-BIOGENIDEC-2009BI021886

PATIENT
  Age: 49 Year
  Sex: Female

DRUGS (8)
  1. NATALIZUMAB [Suspect]
     Indication: RELAPSING-REMITTING MULTIPLE SCLEROSIS
     Route: 042
     Dates: start: 20090420
  2. LASIX [Concomitant]
     Indication: DIURETIC THERAPY
  3. TOLTERODINE TARTRATE [Concomitant]
     Indication: MICTURITION URGENCY
  4. DICLOFENAC [Concomitant]
     Indication: PAIN
     Dates: end: 20090622
  5. BACLOFEN [Concomitant]
     Indication: MUSCLE SPASTICITY
  6. ALVEDON FORTE [Concomitant]
     Indication: PAIN
  7. TRYPTIZOL [Concomitant]
     Indication: PAIN
  8. CITALOPRAM HYDROBROMIDE [Concomitant]
     Indication: DEPRESSION

REACTIONS (1)
  - PULMONARY EMBOLISM [None]
